FAERS Safety Report 8534522-9 (Version None)
Quarter: 2012Q3

REPORT INFORMATION
  Report Type: 
  Country: None (occurrence: None)
  Receive Date: 20120724
  Receipt Date: 20120720
  Transmission Date: 20120928
  Serious: No
  Sender: FDA-Public Use
  Company Number: US-BAYER-2012-050215

PATIENT
  Age: 59 Year
  Sex: Female

DRUGS (3)
  1. BETASERON [Suspect]
     Indication: MULTIPLE SCLEROSIS
     Dosage: 8 MIU, QOD
     Route: 058
     Dates: start: 20040405, end: 20111012
  2. CYMBALTA [Suspect]
  3. AMPYRA [Suspect]

REACTIONS (1)
  - URTICARIA [None]
